FAERS Safety Report 21278975 (Version 2)
Quarter: 2022Q3

REPORT INFORMATION
  Report Type: Spontaneous
  Country: US (occurrence: US)
  Receive Date: 20220901
  Receipt Date: 20220926
  Transmission Date: 20221026
  Serious: No
  Sender: FDA-Public Use
  Company Number: US-BRISTOL-MYERS SQUIBB COMPANY-2022-097243

PATIENT
  Age: 63 Year
  Sex: Male

DRUGS (2)
  1. POMALYST [Suspect]
     Active Substance: POMALIDOMIDE
     Indication: Plasma cell myeloma
     Dosage: TAKE 1 CAPSULE BY MOUTH WHOLE WITH WATER, WITH OR WITHOUT FOOD, AT SAME TIME DAILY ON DAYS 1-21 OF E
     Route: 048
  2. POMALYST [Suspect]
     Active Substance: POMALIDOMIDE
     Dosage: FOR 21 DAYS ON THEN 7 DAYS OFF
     Route: 048
     Dates: start: 20220801

REACTIONS (1)
  - Full blood count abnormal [Unknown]
